FAERS Safety Report 20946879 (Version 1)
Quarter: 2022Q2

REPORT INFORMATION
  Report Type: Spontaneous
  Country: US (occurrence: US)
  Receive Date: 20220610
  Receipt Date: 20220610
  Transmission Date: 20220721
  Serious: Yes (Other)
  Sender: FDA-Public Use
  Company Number: US-009507513-2206USA001927

PATIENT
  Sex: Male

DRUGS (2)
  1. KEYTRUDA [Suspect]
     Active Substance: PEMBROLIZUMAB
     Indication: Product used for unknown indication
     Dosage: UNKNOWN/3 WEEKS
     Dates: start: 20220128
  2. XTANDI [Suspect]
     Active Substance: ENZALUTAMIDE
     Indication: Prostate cancer
     Dosage: 160 MILLIGRAM, ONCE DAILY
     Route: 048
     Dates: start: 20220128

REACTIONS (7)
  - Dyspnoea at rest [Unknown]
  - Sleep disorder [Unknown]
  - Mouth breathing [Unknown]
  - Poor quality sleep [Unknown]
  - Middle insomnia [Unknown]
  - Dysgeusia [Unknown]
  - Rash pruritic [Unknown]

NARRATIVE: CASE EVENT DATE: 20220101
